FAERS Safety Report 5799588-8 (Version None)
Quarter: 2008Q3

REPORT INFORMATION
  Report Type: 
  Country: None (occurrence: None)
  Receive Date: 20080703
  Receipt Date: 20080622
  Transmission Date: 20090109
  Serious: Yes (Other)
  Sender: FDA-Public Use
  Company Number: PHHY2008IL04291

PATIENT
  Age: 40 Year
  Sex: Female

DRUGS (1)
  1. GENTEAL GEL (NVO) [Suspect]

REACTIONS (5)
  - EYE INFLAMMATION [None]
  - EYE IRRITATION [None]
  - EYE PAIN [None]
  - OCULAR HYPERAEMIA [None]
  - THERAPEUTIC PRODUCT CONTAMINATION [None]
